FAERS Safety Report 4703779-4 (Version None)
Quarter: 2005Q2

REPORT INFORMATION
  Report Type: 
  Country: None (occurrence: None)
  Receive Date: 20050629
  Receipt Date: 20050629
  Transmission Date: 20051028
  Serious: No
  Sender: FDA-Public Use
  Company Number: None

PATIENT
  Age: 45 Year
  Sex: Female
  Weight: 53.978 kg

DRUGS (6)
  1. TOPAMAX [Suspect]
     Indication: MIGRAINE
     Dosage: 100 MG PO BID
     Route: 048
     Dates: start: 20030923, end: 20050524
  2. MAXALT [Concomitant]
  3. ZOLOFT [Concomitant]
  4. ALLEGRA [Concomitant]
  5. LORTAB [Concomitant]
  6. ACTONEL [Concomitant]

REACTIONS (11)
  - ABNORMAL SENSATION IN EYE [None]
  - BODY TEMPERATURE DECREASED [None]
  - CONFUSIONAL STATE [None]
  - DISTURBANCE IN ATTENTION [None]
  - GINGIVITIS [None]
  - PARAESTHESIA [None]
  - PARANOIA [None]
  - SKIN DISCOLOURATION [None]
  - SOMNOLENCE [None]
  - SUICIDAL IDEATION [None]
  - URINARY INCONTINENCE [None]
